FAERS Safety Report 24800636 (Version 1)
Quarter: 2025Q1

REPORT INFORMATION
  Report Type: Spontaneous
  Country: US (occurrence: None)
  Receive Date: 20250101
  Receipt Date: 20250101
  Transmission Date: 20250409
  Serious: Yes (Life-Threatening, Disabling, Other)
  Sender: FDA-CTU
  Company Number: None

PATIENT
  Age: 82 Year
  Sex: Female
  Weight: 73.4 kg

DRUGS (1)
  1. CHLORHEXIDINE GLUCONATE [Suspect]
     Active Substance: CHLORHEXIDINE GLUCONATE

REACTIONS (9)
  - Drug hypersensitivity [None]
  - Tooth discolouration [None]
  - Hypertension [None]
  - Mouth swelling [None]
  - Swelling face [None]
  - Swelling [None]
  - Stomatitis [None]
  - Product administration error [None]
  - Victim of elder abuse [None]

NARRATIVE: CASE EVENT DATE: 20241208
